FAERS Safety Report 9251963 (Version 1)
Quarter: 2013Q2

REPORT INFORMATION
  Report Type: Spontaneous
  Country: JP (occurrence: JP)
  Receive Date: 20130424
  Receipt Date: 20130424
  Transmission Date: 20140414
  Serious: Yes (Hospitalization)
  Sender: FDA-Public Use
  Company Number: JP-RANBAXY-2009US-21597

PATIENT
  Age: 56 Year
  Sex: Female

DRUGS (1)
  1. VALACYCLOVIR [Suspect]
     Indication: HERPES VIRUS INFECTION
     Dosage: 3000MG/DAY
     Route: 048

REACTIONS (1)
  - Drug eruption [Recovered/Resolved]
